FAERS Safety Report 5092985-8 (Version None)
Quarter: 2006Q3

REPORT INFORMATION
  Report Type: 
  Country: None (occurrence: None)
  Receive Date: 20060830
  Receipt Date: 20060630
  Transmission Date: 20061208
  Serious: Yes (Hospitalization)
  Sender: FDA-Public Use
  Company Number: FR-GLAXOSMITHKLINE-B0430183A

PATIENT
  Age: 29 Year
  Sex: Male
  Weight: 100 kg

DRUGS (3)
  1. DEROXAT [Suspect]
     Dosage: 20MG SEE DOSAGE TEXT
     Route: 048
     Dates: start: 20060503, end: 20060504
  2. TANGANIL [Suspect]
     Route: 048
     Dates: end: 20060430
  3. PROTHIADEN [Suspect]
     Dosage: 25MG PER DAY
     Route: 048
     Dates: start: 20060504, end: 20060505

REACTIONS (2)
  - LYMPHOPENIA [None]
  - PRURIGO [None]
